FAERS Safety Report 5684828-6 (Version None)
Quarter: 2008Q1

REPORT INFORMATION
  Report Type: 
  Country: None (occurrence: None)
  Receive Date: 20080328
  Receipt Date: 20071105
  Transmission Date: 20080703
  Serious: Yes (Life-Threatening)
  Sender: FDA-Public Use
  Company Number: US-BRISTOL-MYERS SQUIBB COMPANY-13947338

PATIENT
  Age: 54 Year
  Sex: Male
  Weight: 136 kg

DRUGS (2)
  1. ERBITUX [Suspect]
     Indication: NEOPLASM MALIGNANT
     Dosage: LOT #07C00243B, EXPIRATION DATE JULY 2010 FOR 100 MG VIAL
     Route: 042
     Dates: start: 20071018, end: 20071018
  2. RADIATION THERAPY [Concomitant]
     Route: 042
     Dates: start: 20071017, end: 20071017

REACTIONS (1)
  - HYPERSENSITIVITY [None]
